FAERS Safety Report 7263961-1 (Version None)
Quarter: 2011Q1

REPORT INFORMATION
  Report Type: 
  Country: None (occurrence: None)
  Receive Date: 20110130
  Receipt Date: 20101206
  Transmission Date: 20110831
  Serious: No
  Sender: FDA-Public Use
  Company Number: US-ABBOTT-10P-163-0682578-00

PATIENT
  Sex: Male
  Weight: 83.99 kg

DRUGS (8)
  1. XANAX [Concomitant]
     Indication: PRODUCT USED FOR UNKNOWN INDICATION
  2. METHADONE [Concomitant]
     Indication: PRODUCT USED FOR UNKNOWN INDICATION
  3. HUMIRA [Suspect]
     Indication: RHEUMATOID ARTHRITIS
     Route: 058
     Dates: start: 20090101
  4. CRESTOR [Concomitant]
     Indication: PRODUCT USED FOR UNKNOWN INDICATION
  5. SOMA [Concomitant]
     Indication: PRODUCT USED FOR UNKNOWN INDICATION
  6. PREDNISONE [Concomitant]
     Indication: PRODUCT USED FOR UNKNOWN INDICATION
  7. HUMIRA [Suspect]
     Indication: PSORIATIC ARTHROPATHY
     Dates: start: 20101101
  8. HUMIRA [Suspect]
     Indication: PSORIASIS
     Route: 058
     Dates: start: 20101002, end: 20101026

REACTIONS (2)
  - PSORIASIS [None]
  - INCORRECT DOSE ADMINISTERED [None]
